FAERS Safety Report 5129519-5 (Version None)
Quarter: 2006Q4

REPORT INFORMATION
  Report Type: 
  Country: None (occurrence: None)
  Receive Date: 20061012
  Receipt Date: 20060928
  Transmission Date: 20070319
  Serious: Yes (Death)
  Sender: FDA-Public Use
  Company Number: 2006S1009228

PATIENT
  Age: 90 Year
  Sex: Male

DRUGS (11)
  1. CLOZAPINE [Suspect]
     Indication: BIPOLAR DISORDER
     Dosage: 75 MG; QD; PO
     Route: 048
     Dates: start: 20011108, end: 20060919
  2. CLOZAPINE [Suspect]
     Indication: BIPOLAR DISORDER
     Dosage: 100 MG; QD; PO
     Route: 048
     Dates: start: 20011108, end: 20060919
  3. MORPHINE [Concomitant]
  4. SCOPOLAMINE [Concomitant]
  5. ALBUTEROL [Concomitant]
  6. IPRATROPIUM BROMIDE [Concomitant]
  7. METOCLOPRAMIDE [Concomitant]
  8. VENLAFAXIINE HCL [Concomitant]
  9. LANSOPRAZOLE [Concomitant]
  10. LACTULOSE [Concomitant]
  11. SENNA [Concomitant]

REACTIONS (1)
  - PNEUMONIA ASPIRATION [None]
